FAERS Safety Report 7460011-9 (Version None)
Quarter: 2011Q2

REPORT INFORMATION
  Report Type: 
  Country: None (occurrence: None)
  Receive Date: 20110505
  Receipt Date: 20110428
  Transmission Date: 20111010
  Serious: Yes (Other)
  Sender: FDA-Public Use
  Company Number: JP-ACTELION-A-CH2011-48088

PATIENT
  Age: 24 Year
  Sex: Female

DRUGS (8)
  1. TADALAFIL [Concomitant]
  2. BENIDIPINE HYDROCHLORIDE [Concomitant]
  3. TRACLEER [Suspect]
     Indication: PULMONARY HYPERTENSION
     Dosage: 62.5 MG, QD
     Route: 048
     Dates: start: 20110411, end: 20110428
  4. OMEPRAZOLE [Concomitant]
  5. WARFARIN POTASSIUM [Concomitant]
  6. BERAPROST SODIUM [Concomitant]
  7. TORSEMIDE [Concomitant]
  8. OXYGEN [Concomitant]

REACTIONS (2)
  - CHLAMYDIAL INFECTION [None]
  - INTERSTITIAL LUNG DISEASE [None]
